FAERS Safety Report 13337046 (Version 2)
Quarter: 2017Q2

REPORT INFORMATION
  Report Type: Spontaneous
  Country: US (occurrence: US)
  Receive Date: 20170315
  Receipt Date: 20170515
  Transmission Date: 20170830
  Serious: No
  Sender: FDA-Public Use
  Company Number: US-PFIZER INC-2017111484

PATIENT
  Age: 39 Year
  Sex: Male

DRUGS (1)
  1. EUCRISA [Suspect]
     Active Substance: CRISABOROLE
     Indication: DERMATITIS
     Dosage: 2X/DAY (FOR A MONTH)
     Route: 061

REACTIONS (2)
  - Drug ineffective [Unknown]
  - Burning sensation [Unknown]
